FAERS Safety Report 10050735 (Version 2)
Quarter: 2014Q2

REPORT INFORMATION
  Report Type: Spontaneous
  Country: US (occurrence: US)
  Receive Date: 20140401
  Receipt Date: 20140409
  Transmission Date: 20141212
  Serious: Yes (Other)
  Sender: FDA-Public Use
  Company Number: US-ABBVIE-14P-163-1218817-00

PATIENT
  Sex: Male

DRUGS (2)
  1. HUMIRA [Suspect]
     Indication: PRODUCT USED FOR UNKNOWN INDICATION
     Dates: end: 201401
  2. HUMIRA [Suspect]
     Dates: start: 201403

REACTIONS (8)
  - Bladder neoplasm [Recovered/Resolved]
  - Urinary tract infection [Recovered/Resolved]
  - Peripheral swelling [Not Recovered/Not Resolved]
  - Peripheral swelling [Not Recovered/Not Resolved]
  - Psoriasis [Not Recovered/Not Resolved]
  - Psoriasis [Not Recovered/Not Resolved]
  - Autoimmune disorder [Unknown]
  - Pruritus [Recovered/Resolved]
